FAERS Safety Report 7744788-0 (Version None)
Quarter: 2011Q3

REPORT INFORMATION
  Report Type: 
  Country: None (occurrence: None)
  Receive Date: 20110912
  Receipt Date: 20110912
  Transmission Date: 20111222
  Serious: Yes (Other)
  Sender: FDA-Public Use
  Company Number: None

PATIENT
  Age: 49 Year
  Sex: Female
  Weight: 45.359 kg

DRUGS (1)
  1. BUPROPION HCL [Suspect]
     Indication: DEPRESSION
     Dosage: 150 MG TABLET
     Route: 048
     Dates: start: 20110904, end: 20110909

REACTIONS (4)
  - HYPOAESTHESIA [None]
  - DIZZINESS [None]
  - VISION BLURRED [None]
  - PARAESTHESIA [None]
